FAERS Safety Report 10066865 (Version 1)
Quarter: 2014Q2

REPORT INFORMATION
  Report Type: Spontaneous
  Country: US (occurrence: US)
  Receive Date: 20140408
  Receipt Date: 20140408
  Transmission Date: 20141212
  Serious: No
  Sender: FDA-Public Use
  Company Number: US-TEVA-473768USA

PATIENT
  Sex: Male

DRUGS (1)
  1. SYNRIBO [Suspect]
     Indication: CHRONIC MYELOID LEUKAEMIA
     Dosage: TWICE DAILY FOR 14 CONSECUTIVE DAYS FOR A 28-DAY CYCLE
     Dates: start: 20140402

REACTIONS (1)
  - Platelet count decreased [Not Recovered/Not Resolved]
